FAERS Safety Report 14751218 (Version 4)
Quarter: 2018Q2

REPORT INFORMATION
  Report Type: Other
  Country: IT (occurrence: IT)
  Receive Date: 20180412
  Receipt Date: 20180614
  Transmission Date: 20180711
  Serious: Yes (Hospitalization, Other)
  Sender: FDA-Public Use
  Company Number: IT-MERCK KGAA-2045661

PATIENT
  Age: 85 Year
  Sex: Female

DRUGS (13)
  1. CLOPIDOGREL [Suspect]
     Active Substance: CLOPIDOGREL BISULFATE
     Route: 048
  2. IRBESARTAN. [Suspect]
     Active Substance: IRBESARTAN
     Route: 048
  3. CARVEDILOL. [Suspect]
     Active Substance: CARVEDILOL
     Route: 048
  4. CARVEDILOL. [Suspect]
     Active Substance: CARVEDILOL
     Route: 048
  5. NOVOTHYROX [Suspect]
     Active Substance: LEVOTHYROXINE SODIUM
     Indication: PRODUCT USED FOR UNKNOWN INDICATION
     Route: 048
  6. PAROXETINE. [Suspect]
     Active Substance: PAROXETINE
     Route: 048
  7. ATORVASTATIN [Suspect]
     Active Substance: ATORVASTATIN
     Route: 048
  8. IRON [Suspect]
     Active Substance: IRON
     Route: 048
  9. VENLAFAXINE [Suspect]
     Active Substance: VENLAFAXINE HYDROCHLORIDE
     Route: 048
  10. BUPROPION. [Suspect]
     Active Substance: BUPROPION
     Route: 048
  11. OMEPRAZOLE. [Suspect]
     Active Substance: OMEPRAZOLE
     Route: 048
  12. QUETIAPINE. [Suspect]
     Active Substance: QUETIAPINE
     Route: 048
  13. IDROCHLOROTHIAZIDE [Suspect]
     Active Substance: HYDROCHLOROTHIAZIDE
     Route: 048

REACTIONS (6)
  - Spinal fracture [Unknown]
  - Fall [Unknown]
  - Dehydration [Unknown]
  - Hypotension [Unknown]
  - Drug interaction [Unknown]
  - Labelled drug-drug interaction medication error [Unknown]
